FAERS Safety Report 4494976-4 (Version None)
Quarter: 2004Q4

REPORT INFORMATION
  Report Type: 
  Country: None (occurrence: None)
  Receive Date: 20041105
  Receipt Date: 20041105
  Transmission Date: 20050328
  Serious: Yes (Hospitalization)
  Sender: FDA-Public Use
  Company Number: None

PATIENT
  Age: 41 Year
  Sex: Female
  Weight: 181.4388 kg

DRUGS (1)
  1. ENBREL [Suspect]
     Dosage: 25 MG SQ   TWICE WEEKLY
     Dates: start: 20010601, end: 20030901

REACTIONS (2)
  - DIPLOPIA [None]
  - PARAESTHESIA [None]
